FAERS Safety Report 17571351 (Version 4)
Quarter: 2020Q3

REPORT INFORMATION
  Report Type: Spontaneous
  Country: US (occurrence: US)
  Receive Date: 20200323
  Receipt Date: 20200710
  Transmission Date: 20201102
  Serious: Yes (Hospitalization, Other)
  Sender: FDA-Public Use
  Company Number: US-PFIZER INC-2020122656

PATIENT
  Age: 55 Year
  Sex: Female
  Weight: 84.81 kg

DRUGS (2)
  1. IBRANCE [Suspect]
     Active Substance: PALBOCICLIB
     Indication: BREAST CANCER
     Dosage: 125 MG, 1X/DAY
     Route: 048
     Dates: start: 20200226
  2. IBRANCE [Suspect]
     Active Substance: PALBOCICLIB
     Dosage: 125 MG, DAILY (FOR 21 DAYS,7 DAYS OFF)
     Route: 048
     Dates: start: 20200226

REACTIONS (10)
  - Vomiting [Unknown]
  - Back pain [Unknown]
  - Pyrexia [Unknown]
  - Crohn^s disease [Unknown]
  - Cough [Unknown]
  - Neoplasm progression [Unknown]
  - Abdominal discomfort [Unknown]
  - Enteritis infectious [Unknown]
  - Chills [Unknown]
  - Constipation [Unknown]
